FAERS Safety Report 12981681 (Version 1)
Quarter: 2016Q4

REPORT INFORMATION
  Report Type: Spontaneous
  Country: GB (occurrence: GB)
  Receive Date: 20161129
  Receipt Date: 20161129
  Transmission Date: 20170207
  Serious: Yes (Hospitalization)
  Sender: FDA-Public Use
  Company Number: GB-BEH-2016075579

PATIENT
  Age: 42 Year
  Sex: Female
  Weight: 71.21 kg

DRUGS (1)
  1. HIZENTRA [Suspect]
     Active Substance: HUMAN IMMUNOGLOBULIN G
     Indication: MULTIFOCAL MOTOR NEUROPATHY
     Dosage: 5 ML, 1/1HOURS
     Route: 051
     Dates: start: 20150101

REACTIONS (1)
  - Meningitis aseptic [Recovered/Resolved]
